FAERS Safety Report 6232508-0 (Version None)
Quarter: 2009Q2

REPORT INFORMATION
  Report Type: 
  Country: None (occurrence: None)
  Receive Date: 20090617
  Receipt Date: 20090609
  Transmission Date: 20091009
  Serious: Yes (Other)
  Sender: FDA-Public Use
  Company Number: TR-BAYER-200922839GPV

PATIENT
  Age: 48 Year
  Sex: Female

DRUGS (2)
  1. CIPROFLOXACIN [Suspect]
     Indication: BRONCHIECTASIS
     Dosage: DAY 4
     Route: 065
  2. CEFEPIME [Suspect]
     Indication: BRONCHIECTASIS
     Dosage: DAY 6
     Route: 065

REACTIONS (5)
  - AGITATION [None]
  - LOSS OF CONSCIOUSNESS [None]
  - SPEECH DISORDER [None]
  - STATUS EPILEPTICUS [None]
  - TREMOR [None]
